FAERS Safety Report 9670383 (Version 1)
Quarter: 2013Q4

REPORT INFORMATION
  Report Type: Spontaneous
  Country: US (occurrence: US)
  Receive Date: 20131105
  Receipt Date: 20131105
  Transmission Date: 20140711
  Serious: No
  Sender: FDA-Public Use
  Company Number: US-B.I. PHARMACEUTICALS,INC./RIDGEFIELD-2013-BI-34163BP

PATIENT
  Age: 52 Year
  Sex: Female
  Weight: 59 kg

DRUGS (12)
  1. SPIRIVA [Suspect]
     Indication: CHRONIC OBSTRUCTIVE PULMONARY DISEASE
     Dosage: 18 MCG
     Route: 055
  2. SPIRIVA [Suspect]
     Dosage: 36 MCG
     Route: 055
     Dates: start: 20131016
  3. ASPIRIN [Concomitant]
     Indication: BLOOD DISORDER
     Dosage: 81 MG
     Route: 048
  4. STEROIDS [Concomitant]
     Indication: CHRONIC OBSTRUCTIVE PULMONARY DISEASE
     Dosage: 5 MG
     Route: 048
  5. STEROIDS [Concomitant]
     Route: 048
  6. OXYCODINE [Concomitant]
     Indication: BACK PAIN
     Dosage: 120 MG
     Route: 048
  7. VALIUM [Concomitant]
     Indication: NERVOUSNESS
     Route: 048
  8. VALIUM [Concomitant]
     Indication: ANXIETY
  9. VALIUM [Concomitant]
     Indication: PANIC ATTACK
  10. CELEXA [Concomitant]
     Indication: NERVOUSNESS
     Dosage: 20 MG
     Route: 048
  11. CELEXA [Concomitant]
     Indication: ANXIETY
  12. CELEXA [Concomitant]
     Indication: PANIC ATTACK

REACTIONS (1)
  - Medication error [Not Recovered/Not Resolved]
